FAERS Safety Report 7338972-8 (Version None)
Quarter: 2011Q1

REPORT INFORMATION
  Report Type: 
  Country: None (occurrence: None)
  Receive Date: 20110308
  Receipt Date: 20110223
  Transmission Date: 20110831
  Serious: Yes (Death, Hospitalization, Other)
  Sender: FDA-Public Use
  Company Number: FR-ELI_LILLY_AND_COMPANY-FR201102006640

PATIENT
  Sex: Male

DRUGS (21)
  1. DIFFU K [Concomitant]
     Dosage: UNK, UNKNOWN
     Route: 047
     Dates: start: 20100521
  2. ATARAX [Concomitant]
     Dosage: UNK, UNK
     Dates: start: 20100521
  3. OGASTRO [Concomitant]
     Dosage: UNK, UNKNOWN
     Route: 048
     Dates: end: 20100510
  4. CYMBALTA [Suspect]
     Indication: DEPRESSION
     Dosage: 60 MG, DAILY (1/D)
     Route: 048
     Dates: start: 20100421, end: 20100510
  5. ANAFRANIL [Concomitant]
     Dosage: UNK, UNKNOWN
     Route: 048
     Dates: end: 20100510
  6. TEMESTA [Concomitant]
     Dosage: UNK, UNKNOWN
     Route: 048
     Dates: start: 20100521
  7. DIAMICRON [Concomitant]
     Dosage: UNK, UNKNOWN
     Route: 048
     Dates: start: 20100521
  8. OGASTRO [Concomitant]
     Dosage: UNK, UNKNOWN
     Route: 048
     Dates: start: 20100521
  9. ANAFRANIL [Concomitant]
     Dosage: UNK, UNKNOWN
     Route: 048
     Dates: start: 20100521
  10. KARDEGIC [Concomitant]
     Dosage: UNK, UNKNOWN
     Dates: start: 20100521
  11. DIFFU K [Concomitant]
     Dosage: UNK, UNKNOWN
     Route: 048
     Dates: end: 20100510
  12. SEROPLEX [Concomitant]
     Dosage: UNK, UNKNOWN
     Route: 048
     Dates: end: 20100510
  13. TAMSULOSIN [Concomitant]
     Dosage: UNK, UNKNOWN
     Route: 048
     Dates: start: 20100521
  14. FUROSEMIDE [Concomitant]
     Dosage: UNK, UNKNOWN
     Route: 048
     Dates: end: 20100510
  15. FUROSEMIDE [Concomitant]
     Dosage: UNK, UNKNOWN
     Route: 048
     Dates: start: 20100521
  16. TAMSULOSIN [Concomitant]
     Dosage: UNK, UNKNOWN
     Route: 048
     Dates: end: 20100510
  17. ATARAX [Concomitant]
     Dosage: UNK, UNKNOWN
     Route: 048
  18. TEMESTA [Concomitant]
     Dosage: UNK, UNKNOWN
     Route: 048
     Dates: end: 20100510
  19. KARDEGIC [Concomitant]
     Dosage: UNK, UNKNOWN
     Route: 048
     Dates: end: 20100510
  20. DIAMICRON [Concomitant]
     Dosage: UNK, UNKNOWN
     Route: 048
     Dates: end: 20100510
  21. SEROPLEX [Concomitant]
     Dosage: UNK, UNKNOWN
     Route: 048
     Dates: start: 20100521

REACTIONS (3)
  - CARDIAC DISORDER [None]
  - PLEURAL EFFUSION [None]
  - HEPATITIS FULMINANT [None]
